FAERS Safety Report 21641714 (Version 1)
Quarter: 2022Q4

REPORT INFORMATION
  Report Type: Spontaneous
  Country: JP (occurrence: None)
  Receive Date: 20221125
  Receipt Date: 20221125
  Transmission Date: 20230113
  Serious: Yes (Other)
  Sender: FDA-Public Use
  Company Number: 2022A385149

PATIENT
  Age: 86 Year
  Sex: Female

DRUGS (1)
  1. TAGRISSO [Suspect]
     Active Substance: OSIMERTINIB
     Indication: Non-small cell lung cancer
     Route: 048

REACTIONS (4)
  - Pneumonia aspiration [Unknown]
  - Cognitive disorder [Unknown]
  - Off label use [Unknown]
  - Wrong technique in product usage process [Unknown]
